FAERS Safety Report 9684574 (Version 1)
Quarter: 2013Q4

REPORT INFORMATION
  Report Type: Spontaneous
  Country: US (occurrence: US)
  Receive Date: 20131112
  Receipt Date: 20131112
  Transmission Date: 20140711
  Serious: No
  Sender: FDA-Public Use
  Company Number: US-AMGEN-USASP2013054920

PATIENT
  Sex: Female

DRUGS (1)
  1. ARANESP [Suspect]
     Indication: BLOOD COUNT ABNORMAL
     Dosage: 100 MUG, QWK
     Route: 065

REACTIONS (1)
  - Blood disorder [Unknown]
